FAERS Safety Report 10636934 (Version 1)
Quarter: 2014Q4

REPORT INFORMATION
  Report Type: Spontaneous
  Country: US (occurrence: None)
  Receive Date: 20141204
  Receipt Date: 20141204
  Transmission Date: 20150529
  Serious: Yes (Life-Threatening, Hospitalization, Disabling)
  Sender: FDA-Public Use
  Company Number: None

PATIENT
  Age: 58 Year
  Sex: Female
  Weight: 62.6 kg

DRUGS (1)
  1. HYDROCORTISONE. [Suspect]
     Active Substance: HYDROCORTISONE
     Indication: FATIGUE
     Dosage: TAKEN BY MOUTH

REACTIONS (7)
  - Blood pressure increased [None]
  - Product substitution issue [None]
  - Nervousness [None]
  - Anxiety [None]
  - Tremor [None]
  - Feeling jittery [None]
  - Feeling abnormal [None]

NARRATIVE: CASE EVENT DATE: 20141201
